FAERS Safety Report 7141076-0 (Version None)
Quarter: 2010Q4

REPORT INFORMATION
  Report Type: 
  Country: None (occurrence: None)
  Receive Date: 20101122
  Receipt Date: 20101105
  Transmission Date: 20110411
  Serious: Yes (Hospitalization)
  Sender: FDA-Public Use
  Company Number: DSA_44324_2010

PATIENT
  Age: 63 Year
  Sex: Male

DRUGS (1)
  1. ENALAPRIL MALEATE AND HYDROCHLOROTHIAZIDE [Suspect]
     Indication: HYPERTENSION
     Dosage: 1 DF QD ORAL
     Route: 048
     Dates: end: 20100808

REACTIONS (10)
  - C-REACTIVE PROTEIN INCREASED [None]
  - CHEST PAIN [None]
  - DYSPNOEA [None]
  - HYPERTHERMIA [None]
  - INFECTION [None]
  - LUNG DISORDER [None]
  - LYMPHOPENIA [None]
  - OXYGEN SATURATION DECREASED [None]
  - PO2 DECREASED [None]
  - RALES [None]
